FAERS Safety Report 5651159-X (Version None)
Quarter: 2008Q1

REPORT INFORMATION
  Report Type: 
  Country: None (occurrence: None)
  Receive Date: 20080305
  Receipt Date: 20080227
  Transmission Date: 20080703
  Serious: Yes (Hospitalization)
  Sender: FDA-Public Use
  Company Number: US-MERCK-0705USA04162

PATIENT
  Age: 62 Year
  Sex: Female

DRUGS (2)
  1. FOSAMAX [Suspect]
     Indication: OSTEOPOROSIS
     Route: 048
     Dates: start: 19980101, end: 19990101
  2. SYNTHROID [Concomitant]
     Indication: THYROID DISORDER
     Route: 065
     Dates: start: 19770101

REACTIONS (6)
  - APPENDIX DISORDER [None]
  - ARTHRALGIA [None]
  - GINGIVAL DISORDER [None]
  - HEART RATE IRREGULAR [None]
  - ORAL INFECTION [None]
  - RESORPTION BONE INCREASED [None]
